FAERS Safety Report 6338511-4 (Version None)
Quarter: 2009Q3

REPORT INFORMATION
  Report Type: 
  Country: None (occurrence: None)
  Receive Date: 20090901
  Receipt Date: 20090821
  Transmission Date: 20100115
  Serious: Yes (Other)
  Sender: FDA-Public Use
  Company Number: 2009-03453

PATIENT

DRUGS (1)
  1. VELCADE [Suspect]
     Indication: MULTIPLE MYELOMA
     Dosage: INTRAVENOUS
     Route: 042

REACTIONS (9)
  - ABDOMINAL DISTENSION [None]
  - ALTERED STATE OF CONSCIOUSNESS [None]
  - FASCIITIS [None]
  - FEELING ABNORMAL [None]
  - HEPATIC FUNCTION ABNORMAL [None]
  - INCOHERENT [None]
  - PANNICULITIS [None]
  - PROTEINURIA [None]
  - PYREXIA [None]
